FAERS Safety Report 15679371 (Version 2)
Quarter: 2022Q3

REPORT INFORMATION
  Report Type: Spontaneous
  Country: US (occurrence: US)
  Receive Date: 20181203
  Receipt Date: 20220923
  Transmission Date: 20221027
  Serious: Yes (Other)
  Sender: FDA-Public Use
  Company Number: US-JNJFOC-20181124795

PATIENT
  Age: 14 Year
  Sex: Male
  Weight: 118.04 kg

DRUGS (4)
  1. RISPERDAL [Suspect]
     Active Substance: RISPERIDONE
     Indication: Behaviour disorder
     Dosage: ONE IN THE AM AND ONE IN THE PM
     Route: 048
     Dates: start: 2000, end: 2004
  2. RISPERDAL [Suspect]
     Active Substance: RISPERIDONE
     Dosage: 0.5 MG 1 IN MORNING (AM) AND 2 AT BEDTIME
     Route: 048
     Dates: start: 20011218
  3. DEPAKOTE [Concomitant]
     Active Substance: DIVALPROEX SODIUM
     Dosage: ONE IN THE AM
     Route: 065
  4. DEPAKOTE [Concomitant]
     Active Substance: DIVALPROEX SODIUM
     Dosage: ONE IN THE PM
     Route: 065

REACTIONS (2)
  - Gynaecomastia [Unknown]
  - Off label use [Unknown]

NARRATIVE: CASE EVENT DATE: 20010101
